FAERS Safety Report 12378466 (Version 1)
Quarter: 2016Q2

REPORT INFORMATION
  Report Type: Spontaneous
  Country: SE (occurrence: SE)
  Receive Date: 20160517
  Receipt Date: 20160517
  Transmission Date: 20160815
  Serious: Yes (Other)
  Sender: FDA-Public Use
  Company Number: SE-UCBSA-2016017324

PATIENT
  Age: 26 Year
  Sex: Female
  Weight: 70 kg

DRUGS (2)
  1. KEPPRA [Suspect]
     Active Substance: LEVETIRACETAM
     Dosage: DOSE ESCALATION
     Dates: start: 201603
  2. KEPPRA [Suspect]
     Active Substance: LEVETIRACETAM
     Indication: EPILEPSY
     Dosage: ^1500 MG^
     Dates: start: 20160318, end: 201603

REACTIONS (7)
  - Muscle spasms [Recovered/Resolved]
  - Depression [Recovered/Resolved]
  - Hyperacusis [Recovered/Resolved]
  - Aggression [Recovered/Resolved]
  - Self-injurious ideation [Recovered/Resolved]
  - Fatigue [Recovered/Resolved]
  - Abnormal behaviour [Recovered/Resolved]

NARRATIVE: CASE EVENT DATE: 201603
